FAERS Safety Report 12073593 (Version 1)
Quarter: 2016Q1

REPORT INFORMATION
  Report Type: Spontaneous
  Country: BR (occurrence: BR)
  Receive Date: 20160212
  Receipt Date: 20160212
  Transmission Date: 20160526
  Serious: Yes (Other)
  Sender: FDA-Public Use
  Company Number: BR-PFIZER INC-2016048030

PATIENT
  Age: 44 Year
  Sex: Female

DRUGS (3)
  1. YAZ [Concomitant]
     Active Substance: DROSPIRENONE\ETHINYL ESTRADIOL
     Dosage: UNK
  2. PRISTIQ EXTENDED RELEASE [Suspect]
     Active Substance: DESVENLAFAXINE SUCCINATE
     Indication: ANTIDEPRESSANT THERAPY
     Dosage: 25 MG, DAILY
     Route: 048
     Dates: start: 20160122
  3. PRISTIQ EXTENDED RELEASE [Suspect]
     Active Substance: DESVENLAFAXINE SUCCINATE
     Dosage: 50 MG (HALF TABLET) DAILY
     Dates: end: 20160124

REACTIONS (5)
  - Erythema [Recovered/Resolved]
  - Blister [Recovered/Resolved]
  - Hypersensitivity [Recovered/Resolved]
  - Pruritus [Recovered/Resolved]
  - Intentional product misuse [Recovered/Resolved]

NARRATIVE: CASE EVENT DATE: 201601
